FAERS Safety Report 9707792 (Version 1)
Quarter: 2013Q4

REPORT INFORMATION
  Report Type: Spontaneous
  Country: US (occurrence: US)
  Receive Date: 20131125
  Receipt Date: 20131125
  Transmission Date: 20140711
  Serious: Yes (Hospitalization)
  Sender: FDA-Public Use
  Company Number: US-ASTELLAS-2013US012157

PATIENT
  Age: 48 Year
  Sex: Female

DRUGS (1)
  1. PROGRAF [Suspect]
     Indication: RENAL TRANSPLANT
     Dosage: 3 MG, BID
     Route: 048
     Dates: start: 2007

REACTIONS (3)
  - Bipolar I disorder [Unknown]
  - Rash erythematous [Unknown]
  - Rash pruritic [Unknown]
